FAERS Safety Report 20036367 (Version 1)
Quarter: 2021Q4

REPORT INFORMATION
  Report Type: Spontaneous
  Country: FR (occurrence: FR)
  Receive Date: 20211105
  Receipt Date: 20211105
  Transmission Date: 20220303
  Serious: Yes (Hospitalization, Other)
  Sender: FDA-Public Use
  Company Number: fr-afssaps-pc20214324

PATIENT
  Age: 66 Year
  Sex: Male

DRUGS (5)
  1. CELECOXIB [Suspect]
     Active Substance: CELECOXIB
     Indication: Cervicobrachial syndrome
     Dosage: UNK
     Route: 048
     Dates: start: 20210817, end: 20210822
  2. TRAMADOL HYDROCHLORIDE [Suspect]
     Active Substance: TRAMADOL HYDROCHLORIDE
     Indication: Cervicobrachial syndrome
     Dosage: UNK
     Route: 048
     Dates: start: 20210817, end: 20210822
  3. DOLIPRANE [Suspect]
     Active Substance: ACETAMINOPHEN
     Indication: Cervicobrachial syndrome
     Dosage: UNK
     Route: 048
     Dates: start: 20210817, end: 20210822
  4. COMIRNATY [Suspect]
     Active Substance: TOZINAMERAN
     Indication: COVID-19 immunisation
     Dosage: 1 DOSAGE FORM, ONCE A DAY
     Route: 030
     Dates: start: 202108, end: 20210823
  5. ACETAMINOPHEN\CAFFEINE\OPIUM [Suspect]
     Active Substance: ACETAMINOPHEN\CAFFEINE\OPIUM
     Indication: Cervicobrachial syndrome
     Dosage: UNK
     Route: 048
     Dates: start: 20210817, end: 20210822

REACTIONS (2)
  - Hepatic cytolysis [Recovering/Resolving]
  - Jaundice cholestatic [Recovering/Resolving]

NARRATIVE: CASE EVENT DATE: 20210822
